FAERS Safety Report 7092158-3 (Version None)
Quarter: 2010Q4

REPORT INFORMATION
  Report Type: 
  Country: None (occurrence: None)
  Receive Date: 20101109
  Receipt Date: 20101102
  Transmission Date: 20110411
  Serious: Yes (Hospitalization)
  Sender: FDA-Public Use
  Company Number: US-TEVA-253696USA

PATIENT
  Sex: Female
  Weight: 55.388 kg

DRUGS (10)
  1. COPAXONE [Suspect]
     Indication: MULTIPLE SCLEROSIS
     Route: 058
  2. AMPYRA [Suspect]
     Indication: GAIT DISTURBANCE
     Dates: start: 20100401
  3. AMPYRA [Suspect]
     Dates: start: 20100827, end: 20100828
  4. AMPYRA [Suspect]
     Dates: end: 20100826
  5. POTASSIUM CHLORIDE [Concomitant]
  6. CHEMOTHERAPEUTICS [Concomitant]
  7. DEMADEX [Concomitant]
  8. TORSEMIDE [Concomitant]
  9. SPIRONOLACTONE [Concomitant]
  10. MULTI-VITAMINS [Concomitant]

REACTIONS (8)
  - AMNESIA [None]
  - ASTHENIA [None]
  - BALANCE DISORDER [None]
  - CONDITION AGGRAVATED [None]
  - CONVULSION [None]
  - FATIGUE [None]
  - HYPOAESTHESIA [None]
  - INAPPROPRIATE SCHEDULE OF DRUG ADMINISTRATION [None]
